FAERS Safety Report 4421392-3 (Version None)
Quarter: 2004Q3

REPORT INFORMATION
  Report Type: 
  Country: None (occurrence: None)
  Receive Date: 20040719
  Receipt Date: 20040618
  Transmission Date: 20050211
  Serious: No
  Sender: FDA-Public Use
  Company Number: 2004219831US

PATIENT
  Sex: Female

DRUGS (1)
  1. INSPRA [Suspect]

REACTIONS (3)
  - ABDOMINAL PAIN [None]
  - ANOREXIA [None]
  - DEPRESSED MOOD [None]
